FAERS Safety Report 7757585-7 (Version None)
Quarter: 2011Q3

REPORT INFORMATION
  Report Type: 
  Country: None (occurrence: None)
  Receive Date: 20110916
  Receipt Date: 20110907
  Transmission Date: 20111222
  Serious: Yes (Other)
  Sender: FDA-Public Use
  Company Number: US-CELGENEUS-163-21880-11060131

PATIENT
  Sex: Male

DRUGS (2)
  1. ACYCLOVIR [Concomitant]
     Indication: PROPHYLAXIS
     Route: 065
     Dates: start: 20100201
  2. REVLIMID [Suspect]
     Indication: MULTIPLE MYELOMA
     Dosage: 10 MILLIGRAM
     Route: 048
     Dates: start: 20110404, end: 20110426

REACTIONS (3)
  - DEHYDRATION [None]
  - RENAL FAILURE [None]
  - FATIGUE [None]
